FAERS Safety Report 14712753 (Version 5)
Quarter: 2018Q2

REPORT INFORMATION
  Report Type: Report from Study
  Country: IT (occurrence: IT)
  Receive Date: 20180404
  Receipt Date: 20180530
  Transmission Date: 20180711
  Serious: Yes (Other)
  Sender: FDA-Public Use
  Company Number: IT-ROCHE-2094496

PATIENT
  Age: 47 Year
  Sex: Female
  Weight: 58 kg

DRUGS (40)
  1. RITUXIMAB. [Suspect]
     Active Substance: RITUXIMAB
     Indication: MARGINAL ZONE LYMPHOMA
     Dosage: DATE OF MOST RECENT DOSE OF RITUXIMAB PRIOR TO ADVERSE EVENT: 16/FEB/2018
     Route: 042
     Dates: start: 20180216
  2. ANTRA [Concomitant]
     Active Substance: OMEPRAZOLE
     Indication: PROPHYLAXIS
     Route: 065
     Dates: start: 20180205, end: 20180211
  3. MEPRAL [Concomitant]
     Active Substance: OMEPRAZOLE SODIUM
     Indication: PROPHYLAXIS
     Route: 065
     Dates: start: 20180211, end: 20180219
  4. PERFALGAN [Concomitant]
     Active Substance: ACETAMINOPHEN
     Route: 065
     Dates: start: 20180316
  5. TRIMETON [Concomitant]
     Active Substance: CHLORPHENIRAMINE MALEATE
     Route: 065
     Dates: start: 20180316
  6. ACICLIN [Concomitant]
     Active Substance: ACYCLOVIR
     Indication: PROPHYLAXIS
     Route: 065
     Dates: start: 20180309
  7. TRIMETON [Concomitant]
     Active Substance: CHLORPHENIRAMINE MALEATE
     Route: 065
     Dates: start: 20180216
  8. PERFALGAN [Concomitant]
     Active Substance: ACETAMINOPHEN
     Route: 065
     Dates: start: 20180216, end: 20180216
  9. ZYLORIC [Concomitant]
     Active Substance: ALLOPURINOL
     Indication: PROPHYLAXIS
     Route: 065
     Dates: start: 20180309
  10. LEVOXACIN [Concomitant]
     Active Substance: LEVOFLOXACIN
     Indication: PROPHYLAXIS
     Dosage: FOR 5 DAYS EACH CYCLE
     Route: 065
     Dates: start: 20180309, end: 20180327
  11. RITUXIMAB. [Suspect]
     Active Substance: RITUXIMAB
     Indication: MARGINAL ZONE LYMPHOMA
     Dosage: DATE OF MOST RECENT DOSE OF RITUXIMAB PRIOR TO ADVERSE EVENT: 16/MAR/2018
     Route: 058
     Dates: start: 20180316
  12. QUARK [Concomitant]
     Active Substance: RAMIPRIL
  13. GLICLAZIDE [Concomitant]
     Active Substance: GLICLAZIDE
  14. DEURSIL [Concomitant]
     Active Substance: URSODIOL
     Indication: PROPHYLAXIS
     Route: 065
     Dates: start: 20180205
  15. ANTRA [Concomitant]
     Active Substance: OMEPRAZOLE
     Route: 065
     Dates: start: 20180223, end: 20180301
  16. DELTACORTENE [Concomitant]
     Active Substance: PREDNISONE
     Indication: BONE PAIN
     Route: 065
     Dates: start: 20180302, end: 20180319
  17. FILGRASTIM [Concomitant]
     Active Substance: FILGRASTIM
     Indication: NEUTROPENIA
     Route: 065
     Dates: start: 20180309, end: 20180313
  18. DIFLUCAN [Concomitant]
     Active Substance: FLUCONAZOLE
     Indication: PROPHYLAXIS
     Dosage: FOR 5 DAYS EACH CYCLE
     Route: 065
     Dates: start: 20180309, end: 20180327
  19. ATEZOLIZUMAB. [Suspect]
     Active Substance: ATEZOLIZUMAB
     Indication: MARGINAL ZONE LYMPHOMA
     Dosage: DATE OF MOST RECENT DOSE OF ATEZOLIZUMAB PRIOR TO ADVERSE EVENT: 16/MAR/2018
     Route: 042
     Dates: start: 20180216
  20. BACTRIM [Concomitant]
     Active Substance: SULFAMETHOXAZOLE\TRIMETHOPRIM
     Indication: PROPHYLAXIS
     Route: 065
     Dates: start: 20180215, end: 20180301
  21. ANTRA [Concomitant]
     Active Substance: OMEPRAZOLE
     Route: 065
     Dates: start: 20180220, end: 20180222
  22. LAEVOLAC [Concomitant]
     Active Substance: LACTULOSE
     Indication: PROPHYLAXIS
     Route: 065
     Dates: start: 20180206, end: 20180219
  23. URBASON [Concomitant]
     Active Substance: METHYLPREDNISOLONE
     Indication: PROPHYLAXIS
     Route: 065
     Dates: start: 20180211, end: 20180214
  24. ACICLOVIR [Concomitant]
     Active Substance: ACYCLOVIR
     Indication: PROPHYLAXIS
     Route: 065
     Dates: start: 20180215, end: 20180301
  25. FLEBOCORTID [Concomitant]
     Active Substance: HYDROCORTISONE SODIUM SUCCINATE
     Route: 065
     Dates: start: 20180316
  26. ANTRA [Concomitant]
     Active Substance: OMEPRAZOLE
     Route: 065
     Dates: start: 20180302
  27. URBASON [Concomitant]
     Active Substance: METHYLPREDNISOLONE
     Route: 065
     Dates: start: 20180215, end: 20180216
  28. MYCOSTATIN [Concomitant]
     Active Substance: NYSTATIN
     Indication: PROPHYLAXIS
     Route: 065
     Dates: start: 20180309
  29. ACICLIN [Concomitant]
     Active Substance: ACYCLOVIR
     Route: 065
     Dates: start: 20180302
  30. FLEBOCORTID [Concomitant]
     Active Substance: HYDROCORTISONE SODIUM SUCCINATE
     Route: 065
     Dates: start: 20180316
  31. BACTRIM [Concomitant]
     Active Substance: SULFAMETHOXAZOLE\TRIMETHOPRIM
     Dosage: BID FOR 2 DAYS WEEKLY
     Route: 065
     Dates: start: 20180309
  32. FASTURTEC [Concomitant]
     Active Substance: RASBURICASE
     Route: 065
     Dates: start: 20180216, end: 20180219
  33. FLEBOCORTID [Concomitant]
     Active Substance: HYDROCORTISONE SODIUM SUCCINATE
     Route: 065
     Dates: start: 20180216, end: 20180216
  34. PERFALGAN [Concomitant]
     Active Substance: ACETAMINOPHEN
     Route: 065
     Dates: start: 20180216, end: 20180216
  35. FASTURTEC [Concomitant]
     Active Substance: RASBURICASE
     Indication: PROPHYLAXIS
     Route: 065
     Dates: start: 20180215, end: 20180215
  36. NOBISTAR [Concomitant]
     Active Substance: NEBIVOLOL HYDROCHLORIDE
  37. METFORMIN [Concomitant]
     Active Substance: METFORMIN HYDROCHLORIDE
  38. TRIMETON [Concomitant]
     Active Substance: CHLORPHENIRAMINE MALEATE
     Route: 065
     Dates: start: 20180216, end: 20180216
  39. DEBRIDAT [Concomitant]
     Active Substance: TRIMEBUTINE MALEATE
     Route: 065
     Dates: start: 20180302, end: 20180308
  40. RANITIDINE. [Concomitant]
     Active Substance: RANITIDINE
     Route: 065
     Dates: start: 20180316

REACTIONS (1)
  - Systemic inflammatory response syndrome [Not Recovered/Not Resolved]

NARRATIVE: CASE EVENT DATE: 20180320
